FAERS Safety Report 18524027 (Version 1)
Quarter: 2020Q4

REPORT INFORMATION
  Report Type: Spontaneous
  Country: US (occurrence: US)
  Receive Date: 20201119
  Receipt Date: 20201119
  Transmission Date: 20210114
  Serious: Yes (Disabling, Other)
  Sender: FDA-Public Use
  Company Number: US-PURDUE-USA-2020-0177068

PATIENT
  Sex: Male

DRUGS (4)
  1. HYDROMORPHONE TABLETS [Suspect]
     Active Substance: HYDROMORPHONE
     Indication: KNEE OPERATION
     Dosage: UNK, UNK
     Route: 048
  2. DILAUDID [Suspect]
     Active Substance: HYDROMORPHONE HYDROCHLORIDE
     Indication: KNEE OPERATION
     Dosage: UNK, UNK
     Route: 048
  3. MORPHINE [Suspect]
     Active Substance: MORPHINE
     Indication: KNEE OPERATION
     Dosage: UNK, UNK
     Route: 041
  4. HEROIN [Concomitant]
     Active Substance: DIAMORPHINE
     Indication: PRODUCT USED FOR UNKNOWN INDICATION
     Dosage: UNK, UNK
     Route: 065

REACTIONS (7)
  - Overdose [Unknown]
  - Hepatitis C [Unknown]
  - Craniocerebral injury [Unknown]
  - Emotional disorder [Unknown]
  - Drug dependence [Unknown]
  - Road traffic accident [Unknown]
  - Learning disability [Unknown]
